FAERS Safety Report 7933724-X (Version None)
Quarter: 2011Q4

REPORT INFORMATION
  Report Type: 
  Country: None (occurrence: None)
  Receive Date: 20111122
  Receipt Date: 20111116
  Transmission Date: 20120403
  Serious: Yes (Hospitalization, Other)
  Sender: FDA-Public Use
  Company Number: PHHY2010CA78673

PATIENT
  Sex: Female

DRUGS (8)
  1. TYLENOL-500 [Concomitant]
     Dosage: UNK UKN, UNK
  2. NEXIUM                             /01479303/ [Concomitant]
     Dosage: 40 MG, UNK
     Route: 048
  3. GLUCOSAMINE [Concomitant]
     Dosage: 750 MG, UNK
  4. ASPIRIN [Concomitant]
     Dosage: 81 MG, UNK
  5. CLONAZEPAM [Concomitant]
     Dosage: 0.5 MG, UNK
  6. SINEMET CR [Concomitant]
     Dosage: 1 DF(200/50 MG,), TID
  7. LEVODOPA [Concomitant]
     Dosage: 1 DF(100 MG), TID
  8. ZOLEDRONOC ACID [Suspect]
     Indication: OSTEOPOROSIS
     Dosage: 5 MG/100ML, UNK
     Route: 042
     Dates: start: 20081211

REACTIONS (5)
  - HYPERTENSION [None]
  - PARKINSONISM [None]
  - DYSARTHRIA [None]
  - VASCULITIS CEREBRAL [None]
  - TREMOR [None]
